FAERS Safety Report 17838483 (Version 1)
Quarter: 2020Q2

REPORT INFORMATION
  Report Type: Spontaneous
  Country: IT (occurrence: IT)
  Receive Date: 20200528
  Receipt Date: 20200528
  Transmission Date: 20200714
  Serious: Yes (Life-Threatening)
  Sender: FDA-Public Use
  Company Number: PHHY2017IT077009

PATIENT
  Age: 32 Year
  Sex: Male
  Weight: 90 kg

DRUGS (10)
  1. VALPROATE MAGNESIUM [Interacting]
     Active Substance: VALPROATE MAGNESIUM
     Indication: PSYCHOMOTOR HYPERACTIVITY
     Dosage: 1 DF, TID
     Route: 065
     Dates: start: 20170401, end: 20170518
  2. ABILIFY [Concomitant]
     Active Substance: ARIPIPRAZOLE
     Indication: PSYCHOMOTOR HYPERACTIVITY
     Dosage: 1 DF, QD
     Route: 065
  3. VALPROATE SODIUM. [Interacting]
     Active Substance: VALPROATE SODIUM
     Indication: ATTENTION DEFICIT HYPERACTIVITY DISORDER
     Dosage: 2 DF, QD
     Route: 065
  4. DEPAMAG [Concomitant]
     Active Substance: VALPROATE MAGNESIUM
     Indication: PSYCHOMOTOR HYPERACTIVITY
     Dosage: 1 DF, TID
     Route: 065
  5. LOSAPREX [Concomitant]
     Active Substance: LOSARTAN POTASSIUM
     Indication: PRODUCT USED FOR UNKNOWN INDICATION
     Dosage: 1 DF, UNK
     Route: 065
  6. LANSOX [Concomitant]
     Active Substance: LANSOPRAZOLE
     Indication: PRODUCT USED FOR UNKNOWN INDICATION
     Dosage: 1 DF, UNK
     Route: 065
  7. ARIPIPRAZOLE. [Interacting]
     Active Substance: ARIPIPRAZOLE
     Indication: ATTENTION DEFICIT HYPERACTIVITY DISORDER
     Dosage: 20 MG, QD
     Route: 065
  8. BUPROPION. [Suspect]
     Active Substance: BUPROPION
     Indication: ATTENTION DEFICIT HYPERACTIVITY DISORDER
     Dosage: 150 MG, QD
     Route: 065
  9. BISOPROLOL [Concomitant]
     Active Substance: BISOPROLOL
     Indication: PRODUCT USED FOR UNKNOWN INDICATION
     Dosage: 1 DF, QD
     Route: 065
  10. ARIPIPRAZOLE. [Interacting]
     Active Substance: ARIPIPRAZOLE
     Indication: PSYCHOMOTOR HYPERACTIVITY
     Dosage: 10 MG, UNK
     Route: 065

REACTIONS (9)
  - Tachycardia [Recovered/Resolved]
  - Psychomotor retardation [Unknown]
  - Drug interaction [Recovered/Resolved]
  - Amphetamines positive [Unknown]
  - Drug interaction [Unknown]
  - Product use in unapproved indication [Unknown]
  - Torsade de pointes [Recovered/Resolved]
  - Electrocardiogram QT prolonged [Recovered/Resolved]
  - Marfan^s syndrome [Unknown]

NARRATIVE: CASE EVENT DATE: 20170518
